FAERS Safety Report 5812640-3 (Version None)
Quarter: 2008Q3

REPORT INFORMATION
  Report Type: 
  Country: None (occurrence: None)
  Receive Date: 20080717
  Receipt Date: 20080709
  Transmission Date: 20090109
  Serious: Yes (Hospitalization)
  Sender: FDA-Public Use
  Company Number: NL-ALLERGAN-0808343US

PATIENT

DRUGS (5)
  1. BOTOX [Suspect]
     Indication: MUSCLE SPASTICITY
     Dosage: 400 UNITS, SINGLE
     Route: 030
  2. BOTOX [Suspect]
     Dosage: UNK, SINGLE
     Route: 030
  3. BOTOX [Suspect]
     Dosage: UNK, SINGLE
     Route: 030
  4. BOTOX [Suspect]
     Dosage: UNK, SINGLE
     Route: 030
  5. BOTOX [Suspect]
     Dosage: UNK, SINGLE
     Route: 030

REACTIONS (3)
  - APNOEA [None]
  - CHOKING [None]
  - RESPIRATORY ARREST [None]
